FAERS Safety Report 4554545-4 (Version None)
Quarter: 2005Q1

REPORT INFORMATION
  Report Type: 
  Country: None (occurrence: None)
  Receive Date: 20050114
  Receipt Date: 20040906
  Transmission Date: 20050727
  Serious: Yes (Hospitalization)
  Sender: FDA-Public Use
  Company Number: GXKR2004US00576

PATIENT
  Age: 76 Year
  Sex: Female

DRUGS (10)
  1. LISINOPRIL [Suspect]
     Indication: HYPERTENSION
     Dosage: SEE IMAGE
     Dates: start: 19900101, end: 19940801
  2. LISINOPRIL [Suspect]
     Indication: HYPERTENSION
     Dosage: SEE IMAGE
     Dates: start: 19940802, end: 19960720
  3. LISINOPRIL [Suspect]
     Indication: HYPERTENSION
     Dosage: SEE IMAGE
     Dates: start: 19960721, end: 19960812
  4. LISINOPRIL [Suspect]
     Indication: HYPERTENSION
     Dosage: SEE IMAGE
     Dates: start: 19960818, end: 19960820
  5. LISINOPRIL [Suspect]
     Indication: HYPERTENSION
     Dosage: SEE IMAGE
     Dates: start: 19960813
  6. METOPROLOL TARTRATE [Concomitant]
  7. NIZATIDINE [Concomitant]
  8. PROPOXYPHENE (DEXTROPROPOXYPHENE) [Concomitant]
  9. ZOLPIDEM TARTRATE [Concomitant]
  10. PREDNISONE [Concomitant]

REACTIONS (6)
  - FEELING ABNORMAL [None]
  - HEADACHE [None]
  - INAPPROPRIATE ANTIDIURETIC HORMONE SECRETION [None]
  - PARAESTHESIA [None]
  - VERTIGO [None]
  - VISION BLURRED [None]
